FAERS Safety Report 14390666 (Version 1)
Quarter: 2018Q1

REPORT INFORMATION
  Report Type: Spontaneous
  Country: FR (occurrence: FR)
  Receive Date: 20180116
  Receipt Date: 20180116
  Transmission Date: 20180509
  Serious: Yes (Hospitalization)
  Sender: FDA-Public Use
  Company Number: FR-MERCK KGAA-2040066

PATIENT
  Sex: Female

DRUGS (4)
  1. NOVOTHYROX [Suspect]
     Active Substance: LEVOTHYROXINE SODIUM
     Indication: PRODUCT USED FOR UNKNOWN INDICATION
  2. NOVOTHYRAL [Suspect]
     Active Substance: LEVOTHYROXINE SODIUM\LIOTHYRONINE SODIUM
  3. EUTHYROX [Suspect]
     Active Substance: LEVOTHYROXINE SODIUM
  4. NOVOTHYRAL [Suspect]
     Active Substance: LEVOTHYROXINE SODIUM\LIOTHYRONINE SODIUM

REACTIONS (6)
  - Pulmonary embolism [None]
  - Thyroxine increased [None]
  - Blood thyroid stimulating hormone decreased [None]
  - Venous thrombosis [None]
  - Tri-iodothyronine increased [None]
  - Vein disorder [None]

NARRATIVE: CASE EVENT DATE: 201705
